FAERS Safety Report 14664233 (Version 1)
Quarter: 2018Q1

REPORT INFORMATION
  Report Type: Report from Study
  Country: None (occurrence: AR)
  Receive Date: 20180321
  Receipt Date: 20180321
  Transmission Date: 20180509
  Serious: Yes (Other)
  Sender: FDA-Public Use
  Company Number: AR-ABBVIE-17P-007-1914203-00

PATIENT
  Age: 58 Year
  Sex: Female

DRUGS (1)
  1. HUMIRA [Suspect]
     Active Substance: ADALIMUMAB
     Indication: RHEUMATOID ARTHRITIS
     Route: 058
     Dates: start: 20160422

REACTIONS (8)
  - Nodule [Recovering/Resolving]
  - Meniere^s disease [Recovering/Resolving]
  - Intervertebral disc compression [Not Recovered/Not Resolved]
  - Calcium deficiency [Recovering/Resolving]
  - Dysphonia [Recovered/Resolved]
  - Brain hypoxia [Recovered/Resolved with Sequelae]
  - Cerebral ischaemia [Recovered/Resolved with Sequelae]
  - Platelet count increased [Not Recovered/Not Resolved]

NARRATIVE: CASE EVENT DATE: 201612
